FAERS Safety Report 10334391 (Version 2)
Quarter: 2014Q3

REPORT INFORMATION
  Report Type: Report from Study
  Country: FR (occurrence: FR)
  Receive Date: 20140723
  Receipt Date: 20140723
  Transmission Date: 20150326
  Serious: Yes (Hospitalization, Other)
  Sender: FDA-Public Use
  Company Number: FR-BAYER-2014-039743

PATIENT
  Age: 73 Year
  Sex: Male
  Weight: 70 kg

DRUGS (10)
  1. MOTILIUM [Concomitant]
     Active Substance: DOMPERIDONE
     Indication: NAUSEA
     Dosage: TOTAL DAILY DOSE 60 MG
  2. SPASFON [Concomitant]
     Active Substance: PHLOROGLUCINOL
     Indication: GASTROINTESTINAL PAIN
     Dosage: TOTAL DAILY DOSE 6/DAY
  3. SOLUPRED [PREDNISOLONE] [Concomitant]
     Active Substance: PREDNISOLONE
     Indication: DECREASED APPETITE
     Dosage: TOTAL DAILY DOSE 40 MG
  4. PLACEBO [Suspect]
     Active Substance: UNSPECIFIED INGREDIENT
     Indication: SARCOMA METASTATIC
     Dosage: 120 MG
     Dates: start: 20130712, end: 20130828
  5. STIVARGA [Suspect]
     Active Substance: REGORAFENIB
     Indication: SARCOMA METASTATIC
     Dosage: 120 MG, UNK
     Route: 048
     Dates: start: 20130829, end: 20140128
  6. NEBILOX [Concomitant]
     Active Substance: NEBIVOLOL HYDROCHLORIDE
     Indication: HYPERTENSION
     Dosage: TOTAL DAILY DOSE 2.5 MG
     Dates: start: 2012
  7. SULFARLEM [Concomitant]
     Active Substance: ANETHOLTRITHION
     Dosage: TOTAL DAILY DOSE 75 MG
  8. INEXIUM [Concomitant]
     Active Substance: ESOMEPRAZOLE
     Indication: PROPHYLAXIS
     Dosage: TOTAL DAILY DOSE 80 MG
  9. STIVARGA [Suspect]
     Active Substance: REGORAFENIB
     Indication: SARCOMA METASTATIC
     Dosage: 120 MG, QD
     Route: 048
     Dates: start: 20140220, end: 20140224
  10. LEXOMIL [Concomitant]
     Active Substance: BROMAZEPAM
     Indication: ANXIETY
     Dosage: TOTAL DAILY DOSE 1/4

REACTIONS (5)
  - General physical health deterioration [Recovered/Resolved]
  - Renal failure acute [Recovered/Resolved]
  - Confusional state [Recovered/Resolved]
  - Sepsis [None]
  - Hepatic failure [None]

NARRATIVE: CASE EVENT DATE: 20140227
